FAERS Safety Report 22275130 (Version 1)
Quarter: 2023Q2

REPORT INFORMATION
  Report Type: Spontaneous
  Country: US (occurrence: US)
  Receive Date: 20230502
  Receipt Date: 20230502
  Transmission Date: 20230722
  Serious: Yes (Other)
  Sender: FDA-Public Use
  Company Number: US-002147023-NVSC2023US095428

PATIENT
  Sex: Female

DRUGS (2)
  1. XIIDRA [Suspect]
     Active Substance: LIFITEGRAST
     Indication: Product used for unknown indication
     Dosage: UNK, Q12H (12 HOURS APART IN THE MORNING AND EVENING DAILY)
     Route: 065
     Dates: start: 20230419, end: 20230423
  2. SYNTHROID [Concomitant]
     Active Substance: LEVOTHYROXINE SODIUM
     Indication: Product used for unknown indication
     Dosage: UNK
     Route: 065

REACTIONS (9)
  - Blindness transient [Unknown]
  - Blood pressure increased [Unknown]
  - Sinusitis [Unknown]
  - Ear pain [Unknown]
  - Throat irritation [Unknown]
  - Palpitations [Unknown]
  - Body temperature abnormal [Unknown]
  - Eye irritation [Unknown]
  - Dysgeusia [Unknown]
